FAERS Safety Report 20381448 (Version 2)
Quarter: 2022Q1

REPORT INFORMATION
  Report Type: Spontaneous
  Country: US (occurrence: US)
  Receive Date: 20220127
  Receipt Date: 20220202
  Transmission Date: 20220423
  Serious: Yes (Other)
  Sender: FDA-Public Use
  Company Number: ALC2022US000621

PATIENT
  Sex: Female

DRUGS (1)
  1. MINERALS\VITAMINS [Suspect]
     Active Substance: MINERALS\VITAMINS
     Indication: Product used for unknown indication
     Dosage: UNK
     Route: 048

REACTIONS (5)
  - Foreign body in throat [Recovered/Resolved]
  - Product use complaint [Unknown]
  - Dysphagia [Recovered/Resolved]
  - Product size issue [Unknown]
  - Product availability issue [Unknown]
